FAERS Safety Report 22393260 (Version 1)
Quarter: 2023Q2

REPORT INFORMATION
  Report Type: Spontaneous
  Country: US (occurrence: US)
  Receive Date: 20230601
  Receipt Date: 20230601
  Transmission Date: 20230722
  Serious: Yes (Disabling, Other)
  Sender: FDA-Public Use
  Company Number: US-SA-SAC20230531000630

PATIENT
  Age: 49 Year
  Sex: Female
  Weight: 54 kg

DRUGS (9)
  1. DUPIXENT [Suspect]
     Active Substance: DUPILUMAB
     Indication: Dermatitis atopic
     Dosage: 300 MG, QOW
     Route: 058
     Dates: start: 201806
  2. VITAMIN D3 [Concomitant]
     Active Substance: CHOLECALCIFEROL
  3. LYSINE [Concomitant]
     Active Substance: LYSINE
  4. LORATADINE [Concomitant]
     Active Substance: LORATADINE
  5. EPINEPHRINE [Concomitant]
     Active Substance: EPINEPHRINE
  6. OPZELURA [Concomitant]
     Active Substance: RUXOLITINIB PHOSPHATE
  7. ZYRTEC [Concomitant]
     Active Substance: CETIRIZINE HYDROCHLORIDE
  8. VITAMIN D3 [Concomitant]
     Active Substance: CHOLECALCIFEROL
  9. CLEAR EYES COMPLETE 7 SYMPTOM RELIEF [Concomitant]
     Active Substance: HYPROMELLOSES\NAPHAZOLINE HYDROCHLORIDE\POLYSORBATE 80\ZINC SULFATE

REACTIONS (9)
  - Rheumatoid arthritis [Not Recovered/Not Resolved]
  - Back pain [Not Recovered/Not Resolved]
  - Swelling [Not Recovered/Not Resolved]
  - Inflammation [Not Recovered/Not Resolved]
  - Impaired work ability [Not Recovered/Not Resolved]
  - Degenerative bone disease [Unknown]
  - Visual impairment [Unknown]
  - Asthenia [Unknown]
  - Conjunctivitis [Not Recovered/Not Resolved]

NARRATIVE: CASE EVENT DATE: 20180101
